FAERS Safety Report 6636397-1 (Version None)
Quarter: 2010Q1

REPORT INFORMATION
  Report Type: 
  Country: None (occurrence: None)
  Receive Date: 20100316
  Receipt Date: 20100305
  Transmission Date: 20100710
  Serious: Yes (Hospitalization)
  Sender: FDA-Public Use
  Company Number: GB-ELI_LILLY_AND_COMPANY-GB201003000402

PATIENT
  Age: 46 Year
  Sex: Male

DRUGS (4)
  1. HUMALOG MIX 50/50 [Suspect]
     Dosage: UNK, 3/D
     Route: 065
  2. HUMALOG [Suspect]
     Dosage: UNK, UNKNOWN
     Route: 065
  3. HUMALOG [Suspect]
     Dosage: UNK, UNKNOWN
     Route: 065
  4. LANTUS [Concomitant]
     Dosage: UNK, DAILY (1/D)
     Route: 065

REACTIONS (2)
  - HOSPITALISATION [None]
  - WRONG DRUG ADMINISTERED [None]
